FAERS Safety Report 15615989 (Version 2)
Quarter: 2018Q4

REPORT INFORMATION
  Report Type: Spontaneous
  Country: CN (occurrence: CN)
  Receive Date: 20181114
  Receipt Date: 20181120
  Transmission Date: 20190205
  Serious: Yes (Death, Other)
  Sender: FDA-Public Use
  Company Number: CN-ASTELLAS-2018US048776

PATIENT
  Age: 60 Year
  Sex: Male

DRUGS (2)
  1. ERLOTINIB [Suspect]
     Active Substance: ERLOTINIB
     Indication: LUNG ADENOCARCINOMA
     Route: 048
     Dates: start: 201806
  2. CABOZANTINIB [Suspect]
     Active Substance: CABOZANTINIB
     Indication: LUNG ADENOCARCINOMA
     Dosage: 50 MG, ONCE PER 2-3 DAYS
     Route: 048
     Dates: start: 201806

REACTIONS (16)
  - Metabolic acidosis [Unknown]
  - Suffocation feeling [Unknown]
  - Drug eruption [Unknown]
  - Lung infection [Unknown]
  - Somnolence [Unknown]
  - Chest discomfort [Unknown]
  - Loss of consciousness [Unknown]
  - Respiratory failure [Fatal]
  - Acute myocardial infarction [Unknown]
  - Hepatic failure [Unknown]
  - Rash pustular [Unknown]
  - Acute kidney injury [Unknown]
  - Circulatory collapse [Fatal]
  - Cardiac failure [Unknown]
  - Purpura [Unknown]
  - Pyrexia [Unknown]
